FAERS Safety Report 5151624-8 (Version None)
Quarter: 2006Q4

REPORT INFORMATION
  Report Type: 
  Country: None (occurrence: None)
  Receive Date: 20061115
  Receipt Date: 20060608
  Transmission Date: 20070319
  Serious: No
  Sender: FDA-Public Use
  Company Number: US-BRISTOL-MYERS SQUIBB COMPANY-13405154

PATIENT
  Sex: Male

DRUGS (5)
  1. SUSTIVA [Suspect]
     Indication: HIV INFECTION
     Route: 048
     Dates: start: 20041101
  2. VALTREX [Concomitant]
  3. EPIVIR [Concomitant]
  4. VIRACEPT [Concomitant]
  5. LIPITOR [Concomitant]

REACTIONS (1)
  - MEDICATION RESIDUE [None]
